FAERS Safety Report 5335210-2 (Version None)
Quarter: 2007Q2

REPORT INFORMATION
  Report Type: 
  Country: None (occurrence: None)
  Receive Date: 20070308
  Receipt Date: 20070118
  Transmission Date: 20071010
  Serious: No
  Sender: FDA-Public Use
  Company Number: 2007-BP-00624BP

PATIENT
  Sex: Female
  Weight: 49.9 kg

DRUGS (8)
  1. SPIRIVA [Suspect]
     Indication: RESPIRATORY DISORDER
     Dosage: 18 MCG (18 MCG, QD), IH
     Route: 055
     Dates: start: 20040101
  2. ALBUTEROL [Concomitant]
  3. ADVAIR(SERETIDE) [Concomitant]
  4. ASPIRIN [Concomitant]
  5. CALCIUM CHLORIDE [Concomitant]
  6. VITAMIN D [Concomitant]
  7. MULTI-VITAMIN [Concomitant]
  8. BUMETANIDE [Concomitant]

REACTIONS (5)
  - FLUID RETENTION [None]
  - INSOMNIA [None]
  - MUSCLE SPASMS [None]
  - MYALGIA [None]
  - PAIN IN EXTREMITY [None]
